FAERS Safety Report 13486820 (Version 1)
Quarter: 2017Q2

REPORT INFORMATION
  Report Type: Spontaneous
  Country: US (occurrence: US)
  Receive Date: 20170426
  Receipt Date: 20170426
  Transmission Date: 20170830
  Serious: Yes (Other)
  Sender: FDA-Public Use
  Company Number: US-THE MENTHOLATUM COMPANY-1065895

PATIENT
  Age: 23 Year
  Sex: Male

DRUGS (1)
  1. OXY ON-THE-GO ACNE STICK [Suspect]
     Active Substance: BENZOYL PEROXIDE
     Indication: ACNE
     Route: 061

REACTIONS (1)
  - Hypersensitivity [Recovered/Resolved]
